FAERS Safety Report 11505130 (Version 1)
Quarter: 2015Q3

REPORT INFORMATION
  Report Type: Spontaneous
  Country: US (occurrence: US)
  Receive Date: 20150915
  Receipt Date: 20150915
  Transmission Date: 20151125
  Serious: No
  Sender: FDA-Public Use
  Company Number: US-ROCHE-773220

PATIENT
  Age: 23 Year
  Sex: Female

DRUGS (2)
  1. PEGASYS [Suspect]
     Active Substance: PEGINTERFERON ALFA-2A
     Indication: HEPATITIS C
     Dosage: FORM: PRE-FILLED SYRINGE
     Route: 058
  2. RIBAVIRIN. [Suspect]
     Active Substance: RIBAVIRIN
     Indication: HEPATITIS C
     Dosage: VA DISPENSED, IN DIVIDED DOSES
     Route: 048

REACTIONS (5)
  - Headache [Unknown]
  - Decreased appetite [Unknown]
  - Vertigo [Unknown]
  - Loss of consciousness [Unknown]
  - Insomnia [Unknown]

NARRATIVE: CASE EVENT DATE: 20110104
